FAERS Safety Report 7294486-5 (Version None)
Quarter: 2011Q1

REPORT INFORMATION
  Report Type: 
  Country: None (occurrence: None)
  Receive Date: 20110216
  Receipt Date: 20110207
  Transmission Date: 20110831
  Serious: Yes (Hospitalization)
  Sender: FDA-Public Use
  Company Number: US-BIOGENIDEC-2010BI043248

PATIENT
  Age: 59 Year
  Sex: Male

DRUGS (6)
  1. CYMBALTA [Concomitant]
  2. HEPARIN [Concomitant]
     Route: 058
  3. ENALAPRIL [Concomitant]
  4. AVONEX [Suspect]
     Indication: MULTIPLE SCLEROSIS
     Route: 030
     Dates: start: 20050101, end: 20101116
  5. NAPROXEN [Concomitant]
  6. CLONAZEPAM [Concomitant]

REACTIONS (6)
  - MUSCULAR WEAKNESS [None]
  - CEREBRAL INFARCTION [None]
  - MULTIPLE SCLEROSIS [None]
  - DIPLOPIA [None]
  - CEREBROVASCULAR ACCIDENT [None]
  - DIVERTICULITIS [None]
